FAERS Safety Report 20445133 (Version 2)
Quarter: 2022Q3

REPORT INFORMATION
  Report Type: Report from Study
  Country: None (occurrence: IT)
  Receive Date: 20220208
  Receipt Date: 20220930
  Transmission Date: 20221027
  Serious: Yes (Other)
  Sender: FDA-Public Use
  Company Number: IT-Stallergenes SAS-2124729

PATIENT
  Age: 16 Year
  Sex: Male

DRUGS (2)
  1. ORALAIR [Suspect]
     Active Substance: ANTHOXANTHUM ODORATUM POLLEN\DACTYLIS GLOMERATA POLLEN\LOLIUM PERENNE POLLEN\PHLEUM PRATENSE POLLEN\
     Indication: Asthma
     Route: 060
     Dates: start: 20220114, end: 20220120
  2. ORALAIR [Suspect]
     Active Substance: ANTHOXANTHUM ODORATUM POLLEN\DACTYLIS GLOMERATA POLLEN\LOLIUM PERENNE POLLEN\PHLEUM PRATENSE POLLEN\
     Route: 060
     Dates: end: 20220120

REACTIONS (4)
  - Angioedema [Recovering/Resolving]
  - Dyspepsia [Recovering/Resolving]
  - Hypersensitivity [Recovering/Resolving]
  - Oral pruritus [Recovering/Resolving]

NARRATIVE: CASE EVENT DATE: 20220120
